FAERS Safety Report 19698876 (Version 1)
Quarter: 2021Q3

REPORT INFORMATION
  Report Type: Spontaneous
  Country: US (occurrence: US)
  Receive Date: 20210813
  Receipt Date: 20210813
  Transmission Date: 20211014
  Serious: Yes (Other)
  Sender: FDA-Public Use
  Company Number: US-VERO BIOTECH-2114989

PATIENT
  Age: 34 Year
  Sex: Male

DRUGS (2)
  1. GENOSYL [Suspect]
     Active Substance: NITRIC OXIDE
  2. GENOSYL [Suspect]
     Active Substance: NITRIC OXIDE
     Route: 055

REACTIONS (5)
  - Device issue [None]
  - Wrong technique in device usage process [None]
  - No adverse event [None]
  - Oxygen saturation decreased [Recovered/Resolved]
  - Device delivery system issue [None]

NARRATIVE: CASE EVENT DATE: 20210715
